FAERS Safety Report 20015714 (Version 1)
Quarter: 2021Q4

REPORT INFORMATION
  Report Type: Spontaneous
  Country: US (occurrence: None)
  Receive Date: 20211101
  Receipt Date: 20211101
  Transmission Date: 20220304
  Serious: Yes (Other)
  Sender: FDA-Public Use
  Company Number: None

PATIENT
  Age: 22 Year
  Sex: Female
  Weight: 99 kg

DRUGS (1)
  1. DUPIXENT [Suspect]
     Active Substance: DUPILUMAB
     Indication: Dermatitis allergic
     Dosage: OTHER FREQUENCY : EVERY 2 WEEKS;?
     Route: 058
     Dates: start: 20211025

REACTIONS (5)
  - Peripheral swelling [None]
  - Skin exfoliation [None]
  - Blister [None]
  - Skin discolouration [None]
  - Incorrect route of product administration [None]

NARRATIVE: CASE EVENT DATE: 20211025
